FAERS Safety Report 16059006 (Version 1)
Quarter: 2019Q1

REPORT INFORMATION
  Report Type: Other
  Country: IN (occurrence: IN)
  Receive Date: 20190311
  Receipt Date: 20190311
  Transmission Date: 20190418
  Serious: Yes (Hospitalization)
  Sender: FDA-Public Use
  Company Number: IN-B. BRAUN MEDICAL INC.-2063824

PATIENT
  Age: 63 Year
  Sex: Male

DRUGS (1)
  1. MEROPENEM FOR INJECTION USP AND SODIUM CHLORIDE INJECTION USP IN THE [Suspect]
     Active Substance: MEROPENEM\SODIUM CHLORIDE
     Route: 042

REACTIONS (1)
  - Electrolyte imbalance [None]
